FAERS Safety Report 21609511 (Version 1)
Quarter: 2022Q4

REPORT INFORMATION
  Report Type: Spontaneous
  Country: ES (occurrence: None)
  Receive Date: 20221117
  Receipt Date: 20221117
  Transmission Date: 20230113
  Serious: Yes (Disabling)
  Sender: FDA-Public Use
  Company Number: None

PATIENT
  Age: 64 Year
  Sex: Female
  Weight: 46.8 kg

DRUGS (1)
  1. ITRACONAZOLE [Suspect]
     Active Substance: ITRACONAZOLE
     Indication: Onychomycosis
     Dosage: FREQUENCY : TWICE A DAY;?
     Route: 048
     Dates: start: 20210621, end: 20210911

REACTIONS (6)
  - Alopecia [None]
  - Micturition urgency [None]
  - Balance disorder [None]
  - Alopecia [None]
  - Pollakiuria [None]
  - Hypohidrosis [None]

NARRATIVE: CASE EVENT DATE: 20210921
